FAERS Safety Report 12794990 (Version 1)
Quarter: 2016Q3

REPORT INFORMATION
  Report Type: Report from Study
  Country: DE (occurrence: DE)
  Receive Date: 20160929
  Receipt Date: 20160929
  Transmission Date: 20161109
  Serious: Yes (Other)
  Sender: FDA-Public Use
  Company Number: DE-ELI_LILLY_AND_COMPANY-DE201407002096

PATIENT
  Age: 73 Year
  Sex: Female

DRUGS (13)
  1. VITAMIN D [Suspect]
     Active Substance: CHOLECALCIFEROL
     Dosage: UNK, 6/W
  2. PANTOPRAZOLE [Concomitant]
     Active Substance: PANTOPRAZOLE SODIUM
     Dosage: 40 MG, UNKNOWN
  3. LEVODOPA/BENSERAZIDE [Concomitant]
     Active Substance: BENSERAZIDE\LEVODOPA
     Dosage: UNK, UNKNOWN
  4. FORSTEO [Suspect]
     Active Substance: TERIPARATIDE
     Indication: OSTEOPOROSIS
     Dosage: UNK, QD
     Route: 058
     Dates: start: 20140110
  5. RESTEX [Suspect]
     Active Substance: BENSERAZIDE
     Indication: PRODUCT USED FOR UNKNOWN INDICATION
     Dosage: UNK
     Route: 065
     Dates: start: 2012, end: 20140704
  6. IBUPROFEN. [Suspect]
     Active Substance: IBUPROFEN
     Indication: BACK PAIN
     Dosage: UNK, UNKNOWN
     Route: 065
  7. IBUHEXAL                           /00109201/ [Concomitant]
     Active Substance: IBUPROFEN
     Dosage: 600 U, TID
  8. VITAMIN D [Suspect]
     Active Substance: CHOLECALCIFEROL
     Indication: PRODUCT USED FOR UNKNOWN INDICATION
     Dosage: UNK, UNKNOWN
     Route: 065
  9. JUNIK [Concomitant]
     Active Substance: BECLOMETHASONE DIPROPIONATE
     Indication: PRODUCT USED FOR UNKNOWN INDICATION
     Dosage: UNK, UNKNOWN
     Route: 065
  10. CALCIUM [Concomitant]
     Active Substance: CALCIUM
  11. BECLOMETASONE [Concomitant]
     Active Substance: BECLOMETHASONE DIPROPIONATE
     Dosage: 100 U, UNKNOWN
  12. DEKRISTOL [Concomitant]
     Active Substance: CHOLECALCIFEROL
     Dosage: 20000 U, UNKNOWN
  13. FENISTIL [Concomitant]
     Active Substance: DIMETHINDENE
     Dosage: 1 MG, UNKNOWN

REACTIONS (10)
  - C-reactive protein increased [Unknown]
  - Renal function test abnormal [Recovered/Resolved]
  - Blood uric acid increased [Not Recovered/Not Resolved]
  - Haemoglobin decreased [Unknown]
  - Spinal disorder [Unknown]
  - Renal impairment [Unknown]
  - Feeling abnormal [Not Recovered/Not Resolved]
  - Vitamin D increased [Unknown]
  - Viral infection [Recovered/Resolved]
  - Glomerular filtration rate decreased [Not Recovered/Not Resolved]

NARRATIVE: CASE EVENT DATE: 2014
